FAERS Safety Report 4723666-5 (Version None)
Quarter: 2005Q3

REPORT INFORMATION
  Report Type: 
  Country: None (occurrence: None)
  Receive Date: 20050725
  Receipt Date: 20050718
  Transmission Date: 20060218
  Serious: Yes (Hospitalization)
  Sender: FDA-Public Use
  Company Number: 200512389FR

PATIENT
  Age: 88 Year
  Sex: Female

DRUGS (3)
  1. LASIX [Suspect]
     Route: 048
  2. RAMIPRIL [Suspect]
     Route: 048
     Dates: end: 20050506
  3. CIFLOX [Suspect]
     Route: 048
     Dates: start: 20050430, end: 20050506

REACTIONS (5)
  - BLOOD CREATININE INCREASED [None]
  - DRUG INTERACTION [None]
  - PULMONARY OEDEMA [None]
  - RENAL FAILURE ACUTE [None]
  - URINARY TRACT INFECTION [None]
